FAERS Safety Report 5693011-X (Version None)
Quarter: 2008Q2

REPORT INFORMATION
  Report Type: 
  Country: None (occurrence: None)
  Receive Date: 20080401
  Receipt Date: 20080401
  Transmission Date: 20081010
  Serious: Yes (Other)
  Sender: FDA-Public Use
  Company Number: None

PATIENT
  Age: 62 Year
  Sex: Female
  Weight: 77.1115 kg

DRUGS (1)
  1. CYCLOBENZAPRINE [Suspect]
     Indication: INSOMNIA
     Dosage: 5 MG EVENING PO
     Route: 048
     Dates: start: 20071022, end: 20071215

REACTIONS (1)
  - BLOOD PRESSURE INCREASED [None]
